FAERS Safety Report 19662326 (Version 1)
Quarter: 2021Q3

REPORT INFORMATION
  Report Type: Spontaneous
  Country: US (occurrence: US)
  Receive Date: 20210805
  Receipt Date: 20210805
  Transmission Date: 20211014
  Serious: No
  Sender: FDA-Public Use
  Company Number: US-JNJFOC-20210723760

PATIENT
  Age: 49 Year
  Sex: Female
  Weight: 83.01 kg

DRUGS (5)
  1. TYLENOL [Suspect]
     Active Substance: ACETAMINOPHEN
     Indication: HEADACHE
     Route: 065
     Dates: start: 202106
  2. OXYCODONE [Concomitant]
     Active Substance: OXYCODONE
     Indication: ENDOMETRIOSIS
     Dosage: 30 MG OF OXYCODONE AS NEEDED UP TO 4 TIMES A DAY
     Route: 065
  3. COVID?19 VACCINE [Concomitant]
     Indication: PRODUCT USED FOR UNKNOWN INDICATION
     Route: 065
     Dates: start: 20210619
  4. OXYCODONE [Concomitant]
     Active Substance: OXYCODONE
     Indication: BACK PAIN
  5. ZENIX [RANITIDINE HYDROCHLORIDE] [Concomitant]
     Indication: SLEEP DISORDER THERAPY
     Route: 065

REACTIONS (1)
  - Inappropriate schedule of product administration [Unknown]

NARRATIVE: CASE EVENT DATE: 202106
